FAERS Safety Report 18948444 (Version 1)
Quarter: 2021Q1

REPORT INFORMATION
  Report Type: Spontaneous
  Country: US (occurrence: US)
  Receive Date: 20210226
  Receipt Date: 20210226
  Transmission Date: 20210420
  Serious: No
  Sender: FDA-Public Use
  Company Number: US-ROCHE-2541295

PATIENT
  Sex: Female

DRUGS (1)
  1. XOLAIR [Suspect]
     Active Substance: OMALIZUMAB
     Indication: URTICARIA
     Route: 065

REACTIONS (9)
  - Vomiting [Unknown]
  - Acne [Unknown]
  - Feeling hot [Unknown]
  - Swelling face [Unknown]
  - Flushing [Unknown]
  - Headache [Unknown]
  - Mood swings [Unknown]
  - Arthralgia [Unknown]
  - Malaise [Unknown]
